FAERS Safety Report 11012530 (Version 1)
Quarter: 2015Q2

REPORT INFORMATION
  Report Type: Spontaneous
  Country: US (occurrence: None)
  Receive Date: 20150410
  Receipt Date: 20150410
  Transmission Date: 20150821
  Serious: Yes (Other)
  Sender: FDA-Public Use
  Company Number: None

PATIENT
  Age: 73 Year
  Sex: Male
  Weight: 83.01 kg

DRUGS (10)
  1. CELECOXIB 200MG TEVA [Suspect]
     Active Substance: CELECOXIB
     Indication: ARTHRITIS
     Dosage: 2 PILLS ONCE DAILY TAKEN BY MOUTH
     Route: 048
     Dates: start: 20150308, end: 20150316
  2. CLERENEX [Concomitant]
  3. VITAMIN E [Concomitant]
     Active Substance: .ALPHA.-TOCOPHEROL
  4. GINKO [Concomitant]
     Active Substance: GINKGO
  5. LIPITOR [Concomitant]
     Active Substance: ATORVASTATIN CALCIUM
  6. BUDESONIDE. [Concomitant]
     Active Substance: BUDESONIDE
  7. FLUTICASONE [Concomitant]
     Active Substance: FLUTICASONE\FLUTICASONE PROPIONATE
  8. ULTIMATE OMEGA [Concomitant]
  9. RESVERATROL [Concomitant]
     Active Substance: RESVERATROL
  10. VITAMIN D [Concomitant]
     Active Substance: CHOLECALCIFEROL

REACTIONS (4)
  - Movement disorder [None]
  - Product substitution issue [None]
  - Arthritis [None]
  - Mobility decreased [None]

NARRATIVE: CASE EVENT DATE: 20141230
